FAERS Safety Report 23509471 (Version 6)
Quarter: 2024Q4

REPORT INFORMATION
  Report Type: Other
  Country: US (occurrence: US)
  Receive Date: 20240210
  Receipt Date: 20241030
  Transmission Date: 20250114
  Serious: Yes (Hospitalization, Other)
  Sender: TRAVERE THERAPEUTICS
  Company Number: US-TRAVERE-2024TVT00060

PATIENT
  Sex: Male

DRUGS (1)
  1. FILSPARI [Suspect]
     Active Substance: SPARSENTAN
     Indication: IgA nephropathy
     Route: 048

REACTIONS (6)
  - Tendonitis [Unknown]
  - Dementia [Unknown]
  - Nasopharyngitis [Unknown]
  - Fatigue [Unknown]
  - Full blood count decreased [Unknown]
  - Blood iron decreased [Unknown]
